FAERS Safety Report 11702000 (Version 3)
Quarter: 2015Q4

REPORT INFORMATION
  Report Type: Spontaneous
  Country: ES (occurrence: ES)
  Receive Date: 20151105
  Receipt Date: 20151210
  Transmission Date: 20160304
  Serious: Yes (Life-Threatening, Hospitalization)
  Sender: FDA-Public Use
  Company Number: ES-009507513-1510ESP014114

PATIENT
  Age: 50 Year
  Sex: Male

DRUGS (6)
  1. LEVETIRACETAM. [Concomitant]
     Active Substance: LEVETIRACETAM
     Dosage: TOTAL DAILY DOSE: 200 MG, FREQUENCY: EVERY 12 HOURS
     Route: 048
  2. TEMODAL [Suspect]
     Active Substance: TEMOZOLOMIDE
     Indication: OLIGODENDROGLIOMA
     Dosage: 240 MG, QD
     Route: 048
     Dates: start: 20131211, end: 20140210
  3. TEMODAL [Suspect]
     Active Substance: TEMOZOLOMIDE
     Dosage: 100 MG, QD
     Route: 048
     Dates: end: 20131210
  4. AVASTIN [Concomitant]
     Active Substance: BEVACIZUMAB
     Indication: OLIGODENDROGLIOMA
     Dosage: 600 MG, ONCE EVERY TWO WEEKS
     Dates: end: 201410
  5. LUMINAL [Concomitant]
     Active Substance: PHENOBARBITAL SODIUM
     Dosage: 100 MG, QD
     Route: 048
  6. SULFAMETHOXAZOLE AND TRIMETHOPRIM DS [Concomitant]
     Active Substance: SULFAMETHOXAZOLE\TRIMETHOPRIM
     Dosage: UNK
     Route: 048

REACTIONS (1)
  - Organising pneumonia [Recovered/Resolved]

NARRATIVE: CASE EVENT DATE: 201402
